FAERS Safety Report 11835415 (Version 1)
Quarter: 2015Q4

REPORT INFORMATION
  Report Type: Spontaneous
  Country: FR (occurrence: FR)
  Receive Date: 20151215
  Receipt Date: 20151215
  Transmission Date: 20160305
  Serious: Yes (Hospitalization)
  Sender: FDA-Public Use
  Company Number: FR-ROCHE-1675835

PATIENT
  Age: 66 Year
  Sex: Female

DRUGS (7)
  1. BACTRIM [Interacting]
     Active Substance: SULFAMETHOXAZOLE\TRIMETHOPRIM
     Indication: BRONCHITIS
     Route: 048
     Dates: start: 201506
  2. ENDOXAN [Interacting]
     Active Substance: CYCLOPHOSPHAMIDE
     Indication: VASCULITIS
     Dosage: 700 MG/M2
     Route: 042
     Dates: start: 20150702, end: 20151006
  3. CELLCEPT [Suspect]
     Active Substance: MYCOPHENOLATE MOFETIL\MYCOPHENOLATE MOFETIL HYDROCHLORIDE
     Indication: VASCULITIS
     Route: 048
     Dates: start: 20151027, end: 20151119
  4. ESBRIET [Interacting]
     Active Substance: PIRFENIDONE
     Indication: PULMONARY FIBROSIS
     Route: 048
     Dates: start: 201410
  5. AUGMENTIN [Interacting]
     Active Substance: AMOXICILLIN\CLAVULANATE POTASSIUM
     Indication: LUNG INFECTION
     Dosage: 1G/125 MG
     Route: 048
     Dates: start: 20151104, end: 20151111
  6. PREVISCAN (FRANCE) [Interacting]
     Active Substance: FLUINDIONE
     Indication: THROMBOSIS PROPHYLAXIS
     Route: 048
     Dates: start: 2009
  7. RULID [Interacting]
     Active Substance: ROXITHROMYCIN
     Indication: LUNG INFECTION
     Route: 048
     Dates: start: 20151105, end: 20151115

REACTIONS (2)
  - Pulmonary alveolar haemorrhage [Recovered/Resolved]
  - Drug interaction [Unknown]

NARRATIVE: CASE EVENT DATE: 20151112
